FAERS Safety Report 22151833 (Version 1)
Quarter: 2023Q1

REPORT INFORMATION
  Report Type: Spontaneous
  Country: US (occurrence: None)
  Receive Date: 20230328
  Receipt Date: 20230328
  Transmission Date: 20230417
  Serious: No
  Sender: FDA-Public Use
  Company Number: None

PATIENT
  Age: 74 Year
  Sex: Female

DRUGS (1)
  1. EVEROLIMUS [Suspect]
     Active Substance: EVEROLIMUS
     Indication: Breast cancer female
     Dosage: 10MG DAILY ORAL
     Route: 048

REACTIONS (5)
  - Constipation [None]
  - Urinary tract infection [None]
  - Vulvovaginal mycotic infection [None]
  - Rash [None]
  - Joint swelling [None]

NARRATIVE: CASE EVENT DATE: 20230128
